FAERS Safety Report 8484359-4 (Version None)
Quarter: 2012Q3

REPORT INFORMATION
  Report Type: 
  Country: None (occurrence: None)
  Receive Date: 20120703
  Receipt Date: 20120627
  Transmission Date: 20120928
  Serious: Yes (Other)
  Sender: FDA-Public Use
  Company Number: PHHY2012JP055818

PATIENT
  Age: 72 Year
  Sex: Male

DRUGS (3)
  1. ANTIBIOTICS [Concomitant]
     Route: 048
     Dates: end: 20120613
  2. LAMISIL [Suspect]
     Route: 048
     Dates: start: 20111023
  3. ANTIBIOTICS [Concomitant]
     Indication: PURULENCE
     Route: 048
     Dates: start: 20120101

REACTIONS (3)
  - LOCAL SWELLING [None]
  - SUDDEN HEARING LOSS [None]
  - HYPOACUSIS [None]
